FAERS Safety Report 5427094-9 (Version None)
Quarter: 2007Q3

REPORT INFORMATION
  Report Type: 
  Country: None (occurrence: None)
  Receive Date: 20070824
  Receipt Date: 20070824
  Transmission Date: 20080115
  Serious: No
  Sender: FDA-Public Use
  Company Number: None

PATIENT
  Age: 65 Year
  Sex: Female

DRUGS (1)
  1. DILAUDID [Suspect]
     Indication: PAIN
     Dosage: 2MG IV X 1
     Route: 042
     Dates: start: 20070408

REACTIONS (2)
  - BRADYCARDIA [None]
  - SOMNOLENCE [None]
